FAERS Safety Report 4702441-1 (Version None)
Quarter: 2005Q2

REPORT INFORMATION
  Report Type: 
  Country: None (occurrence: None)
  Receive Date: 20050208
  Receipt Date: 20050208
  Transmission Date: 20051028
  Serious: Yes (Hospitalization, Other)
  Sender: FDA-Public Use
  Company Number: None

PATIENT
  Sex: Female

DRUGS (5)
  1. TRAZODONE HCL [Suspect]
     Indication: INSOMNIA
     Dosage: 150 MG PO DAILY
     Route: 048
  2. CELEXA [Concomitant]
  3. COUMADIN [Concomitant]
  4. PEPCID [Concomitant]
  5. XANAX [Concomitant]

REACTIONS (4)
  - CHEST PAIN [None]
  - FATIGUE [None]
  - MYALGIA [None]
  - NAUSEA [None]
